FAERS Safety Report 12959220 (Version 1)
Quarter: 2016Q4

REPORT INFORMATION
  Report Type: Spontaneous
  Country: US (occurrence: US)
  Receive Date: 20161121
  Receipt Date: 20161121
  Transmission Date: 20170207
  Serious: No
  Sender: FDA-Public Use
  Company Number: US-BIOGEN-2016BI00319549

PATIENT
  Sex: Female

DRUGS (3)
  1. TECFIDERA [Suspect]
     Active Substance: DIMETHYL FUMARATE
     Route: 065
     Dates: start: 20130718, end: 20140122
  2. TECFIDERA [Suspect]
     Active Substance: DIMETHYL FUMARATE
     Indication: MULTIPLE SCLEROSIS
     Route: 065
     Dates: start: 20150622
  3. TECFIDERA [Suspect]
     Active Substance: DIMETHYL FUMARATE
     Route: 065
     Dates: start: 20140122

REACTIONS (9)
  - Erythema [Unknown]
  - Somnambulism [Unknown]
  - Flushing [Unknown]
  - Rash [Unknown]
  - Pain in extremity [Unknown]
  - Fall [Recovered/Resolved]
  - Musculoskeletal disorder [Unknown]
  - Cognitive disorder [Unknown]
  - Pruritus [Unknown]
